FAERS Safety Report 16858821 (Version 1)
Quarter: 2019Q3

REPORT INFORMATION
  Report Type: Spontaneous
  Country: US (occurrence: US)
  Receive Date: 20190926
  Receipt Date: 20190926
  Transmission Date: 20191005
  Serious: Yes (Other)
  Sender: FDA-Public Use
  Company Number: US-MALLINCKRODT-T201905376

PATIENT
  Sex: Female
  Weight: 71 kg

DRUGS (2)
  1. ORENCIA [Suspect]
     Active Substance: ABATACEPT
     Indication: RHEUMATOID ARTHRITIS
     Dosage: 125 MG/ML, WEEKLY
     Route: 058
     Dates: start: 201904
  2. H.P. ACTHAR [Suspect]
     Active Substance: CORTICOTROPIN
     Indication: RHEUMATOID ARTHRITIS
     Dosage: 40 UNITS (0.5 ML) TWO TIMES A WEEK
     Route: 058
     Dates: start: 201903

REACTIONS (3)
  - Eye haemorrhage [Unknown]
  - Fall [Unknown]
  - Skin mass [Unknown]

NARRATIVE: CASE EVENT DATE: 2019
